FAERS Safety Report 11747086 (Version 1)
Quarter: 2015Q4

REPORT INFORMATION
  Report Type: Spontaneous
  Country: US (occurrence: US)
  Receive Date: 20151117
  Receipt Date: 20151117
  Transmission Date: 20160304
  Serious: No
  Sender: FDA-Public Use
  Company Number: US-FRI-1000080003

PATIENT
  Sex: Male

DRUGS (1)
  1. FETZIMA [Suspect]
     Active Substance: LEVOMILNACIPRAN HYDROCHLORIDE
     Indication: ANXIETY
     Dosage: 20MG
     Route: 048
     Dates: start: 201505, end: 201506

REACTIONS (6)
  - Genital pain [Not Recovered/Not Resolved]
  - Off label use [Not Recovered/Not Resolved]
  - Painful erection [Recovered/Resolved]
  - Premature ejaculation [Recovered/Resolved]
  - Erectile dysfunction [Recovered/Resolved]
  - Penis disorder [Recovered/Resolved]
